FAERS Safety Report 4389102-6 (Version None)
Quarter: 2004Q2

REPORT INFORMATION
  Report Type: 
  Country: None (occurrence: None)
  Receive Date: 20040628
  Receipt Date: 20040610
  Transmission Date: 20050107
  Serious: Yes (Other)
  Sender: FDA-Public Use
  Company Number: 2004UW06035

PATIENT
  Age: 46 Year
  Sex: Male
  Weight: 65.318 kg

DRUGS (9)
  1. SEROQUEL [Suspect]
     Indication: DEPRESSION
     Dates: start: 20030101, end: 20030101
  2. SERZONE [Suspect]
  3. MOTRIN [Concomitant]
  4. HEPARIN [Concomitant]
  5. ULTRAM [Concomitant]
  6. PREDNISONE [Concomitant]
  7. CELLCEPT [Concomitant]
  8. SLEEPING PILL [Concomitant]
  9. WELLBUTRIN [Suspect]
     Dates: end: 20030101

REACTIONS (6)
  - ABASIA [None]
  - DYSSTASIA [None]
  - FALL [None]
  - MEDICATION ERROR [None]
  - MUSCULOSKELETAL STIFFNESS [None]
  - RHABDOMYOLYSIS [None]
